FAERS Safety Report 9037966 (Version 1)
Quarter: 2013Q1

REPORT INFORMATION
  Report Type: Report from Study
  Country: US (occurrence: US)
  Receive Date: 20130129
  Receipt Date: 20130129
  Transmission Date: 20140127
  Serious: No
  Sender: FDA-Public Use
  Company Number: US-ABBOTT-11P-163-0866339-00

PATIENT
  Age: 47 Year
  Sex: Male

DRUGS (6)
  1. HUMIRA 40 MG/0.8 ML PEN [Suspect]
     Indication: RHEUMATOID ARTHRITIS
     Dates: start: 201105
  2. ATENOLOL [Concomitant]
     Indication: HYPERTENSION
     Dosage: DAILY
  3. PRILOSEC [Concomitant]
     Indication: ABDOMINAL DISCOMFORT
     Dosage: DAILY
  4. PRILOSEC [Concomitant]
     Indication: GASTROOESOPHAGEAL REFLUX DISEASE
  5. VALIUM [Concomitant]
     Indication: INSOMNIA
  6. PERCOCET [Concomitant]
     Indication: PAIN
     Dosage: DAILY PRN

REACTIONS (10)
  - Malaise [Not Recovered/Not Resolved]
  - Hyperhidrosis [Unknown]
  - Memory impairment [Unknown]
  - Agitation [Unknown]
  - Hypoaesthesia [Unknown]
  - Chest pain [Unknown]
  - Dyspnoea [Unknown]
  - Dehydration [Unknown]
  - Hypoaesthesia [Not Recovered/Not Resolved]
  - Paraesthesia [Not Recovered/Not Resolved]
